FAERS Safety Report 5627548-6 (Version None)
Quarter: 2008Q1

REPORT INFORMATION
  Report Type: 
  Country: None (occurrence: None)
  Receive Date: 20080215
  Receipt Date: 20071205
  Transmission Date: 20080703
  Serious: No
  Sender: FDA-Public Use
  Company Number: A0697517A

PATIENT
  Age: 79 Year
  Sex: Male

DRUGS (3)
  1. COREG CR [Suspect]
     Indication: EJECTION FRACTION DECREASED
     Dosage: 10MG AT NIGHT
     Route: 048
     Dates: start: 20071101
  2. DIURETICS [Concomitant]
  3. LISINOPRIL [Concomitant]

REACTIONS (1)
  - HYPOTENSION [None]
